FAERS Safety Report 24410446 (Version 2)
Quarter: 2024Q4

REPORT INFORMATION
  Report Type: Report from Study
  Country: CA (occurrence: CA)
  Receive Date: 20241008
  Receipt Date: 20241009
  Transmission Date: 20250115
  Serious: Yes (Other)
  Sender: JOHNSON AND JOHNSON
  Company Number: CA-JNJFOC-20221016384

PATIENT
  Sex: Female

DRUGS (1)
  1. REMICADE [Suspect]
     Active Substance: INFLIXIMAB
     Indication: Crohn^s disease
     Dosage: EXPIRY REPORTED AS NOV/2026, DEC/2026
     Route: 041
     Dates: start: 20150616

REACTIONS (8)
  - Gastrointestinal obstruction [Unknown]
  - Abdominal pain [Not Recovered/Not Resolved]
  - Abdominal distension [Unknown]
  - Hypophagia [Unknown]
  - Illness [Unknown]
  - Diarrhoea [Unknown]
  - COVID-19 [Recovering/Resolving]
  - Off label use [Unknown]
